FAERS Safety Report 10512114 (Version 1)
Quarter: 2014Q3

REPORT INFORMATION
  Report Type: Spontaneous
  Country: US (occurrence: None)
  Receive Date: 20140926
  Receipt Date: 20140926
  Transmission Date: 20150326
  Serious: No
  Sender: FDA-Public Use
  Company Number: 1000068501

PATIENT
  Age: 73 Year
  Sex: Male

DRUGS (6)
  1. LINZESS [Suspect]
     Active Substance: LINACLOTIDE
     Indication: IRRITABLE BOWEL SYNDROME
     Route: 048
     Dates: start: 20140625
  2. JANUMET(RISTOFOR) [Concomitant]
  3. LIPITOR(ATORVASTATIN CALCIUM) [Concomitant]
  4. LEVOXYL(LEVOTHYROXINE SODIUM) [Concomitant]
  5. KLONOPIN(CLONAZEPAM) [Concomitant]
  6. ATENOLOL. [Concomitant]
     Active Substance: ATENOLOL

REACTIONS (1)
  - Throat irritation [None]

NARRATIVE: CASE EVENT DATE: 20140625
